FAERS Safety Report 16149294 (Version 2)
Quarter: 2019Q2

REPORT INFORMATION
  Report Type: Spontaneous
  Country: DE (occurrence: DE)
  Receive Date: 20190402
  Receipt Date: 20190514
  Transmission Date: 20190711
  Serious: Yes (Other)
  Sender: FDA-Public Use
  Company Number: DE-ROCHE-2289129

PATIENT
  Sex: Male
  Weight: 93 kg

DRUGS (5)
  1. OCREVUS [Suspect]
     Active Substance: OCRELIZUMAB
     Indication: PRIMARY PROGRESSIVE MULTIPLE SCLEROSIS
     Route: 042
     Dates: start: 201809
  2. MIRTAZAPINE. [Concomitant]
     Active Substance: MIRTAZAPINE
     Indication: DEPRESSION
     Route: 048
     Dates: start: 201802
  3. BETMIGA [Concomitant]
     Active Substance: MIRABEGRON
     Route: 048
     Dates: start: 201902
  4. SATIVEX [Concomitant]
     Active Substance: NABIXIMOLS
     Indication: PAIN
  5. SATIVEX [Concomitant]
     Active Substance: NABIXIMOLS
     Indication: MUSCLE SPASTICITY
     Dosage: 6-7 PUFF A DAY
     Route: 065
     Dates: start: 201802

REACTIONS (6)
  - Dizziness [Not Recovered/Not Resolved]
  - Sense of oppression [Not Recovered/Not Resolved]
  - Somnolence [Not Recovered/Not Resolved]
  - Multiple sclerosis [Unknown]
  - Fatigue [Not Recovered/Not Resolved]
  - Asthenia [Not Recovered/Not Resolved]

NARRATIVE: CASE EVENT DATE: 201809
